FAERS Safety Report 5881899-9 (Version None)
Quarter: 2008Q3

REPORT INFORMATION
  Report Type: 
  Country: None (occurrence: None)
  Receive Date: 20080912
  Receipt Date: 20080715
  Transmission Date: 20090109
  Serious: No
  Sender: FDA-Public Use
  Company Number: US-ABBOTT-08P-163-0463792-00

PATIENT
  Sex: Male
  Weight: 53.572 kg

DRUGS (10)
  1. HUMIRA [Suspect]
     Indication: CROHN'S DISEASE
     Route: 058
     Dates: start: 20071101, end: 20071101
  2. HUMIRA [Suspect]
     Route: 058
  3. HUMIRA [Suspect]
     Route: 058
     Dates: end: 20080724
  4. HUMIRA [Suspect]
     Route: 058
     Dates: start: 20080724
  5. AZATHIOPRINE [Concomitant]
     Indication: CROHN'S DISEASE
     Route: 048
  6. PREDNISONE TAB [Concomitant]
     Indication: CROHN'S DISEASE
     Dosage: 20 MG, 2 PILLS TWICE DAILY; PT ADJUSTS DOSE AS NEEDED
     Route: 048
     Dates: start: 20040601
  7. PREDNISONE TAB [Concomitant]
  8. VICODIN [Concomitant]
     Indication: CROHN'S DISEASE
     Route: 048
     Dates: start: 20061101
  9. ASOFEN [Concomitant]
     Indication: CROHN'S DISEASE
     Route: 048
     Dates: start: 20070601
  10. COLOSOL [Concomitant]
     Indication: CROHN'S DISEASE
     Route: 048
     Dates: start: 20080725

REACTIONS (6)
  - ABDOMINAL PAIN [None]
  - BOWEL MOVEMENT IRREGULARITY [None]
  - CROHN'S DISEASE [None]
  - DRUG INEFFECTIVE [None]
  - INSOMNIA [None]
  - PAIN [None]
